FAERS Safety Report 7970380-9 (Version None)
Quarter: 2011Q4

REPORT INFORMATION
  Report Type: 
  Country: None (occurrence: None)
  Receive Date: 20111212
  Receipt Date: 20111128
  Transmission Date: 20120403
  Serious: Yes (Hospitalization)
  Sender: FDA-Public Use
  Company Number: PHFR2011GB006825

PATIENT
  Sex: Female

DRUGS (4)
  1. CLOZARIL [Suspect]
     Indication: SCHIZOPHRENIA
     Route: 048
     Dates: start: 20030217
  2. ACETAMINOPHEN AND CODEINE PHOSPHATE [Concomitant]
     Dosage: UNK
  3. MIRTAZAPINE [Concomitant]
     Dosage: UNK
  4. PROCHLORPERAZINE [Concomitant]

REACTIONS (2)
  - ABDOMINAL PAIN UPPER [None]
  - COLONIC OBSTRUCTION [None]
